FAERS Safety Report 6157702-9 (Version None)
Quarter: 2009Q2

REPORT INFORMATION
  Report Type: 
  Country: None (occurrence: None)
  Receive Date: 20090414
  Receipt Date: 20081030
  Transmission Date: 20091009
  Serious: Yes (Life-Threatening, Disabling, Congenital Anomaly)
  Sender: FDA-Public Use
  Company Number: NUBN20080008

PATIENT
  Sex: Female

DRUGS (1)
  1. NUBAIN [Suspect]
     Indication: LABOUR PAIN
     Dates: start: 19981020, end: 19981020

REACTIONS (14)
  - BRADYCARDIA FOETAL [None]
  - CAESAREAN SECTION [None]
  - CEREBRAL PALSY [None]
  - CONGENITAL BRAIN DAMAGE [None]
  - CYANOSIS NEONATAL [None]
  - FOETAL DISORDER [None]
  - FOETAL DISTRESS SYNDROME [None]
  - HYPOTONIA NEONATAL [None]
  - HYPOXIC ENCEPHALOPATHY [None]
  - MATERNAL DRUGS AFFECTING FOETUS [None]
  - METABOLIC ACIDOSIS [None]
  - NEONATAL DISORDER [None]
  - NEONATAL RESPIRATORY ARREST [None]
  - PULSE ABSENT [None]
